FAERS Safety Report 16408915 (Version 1)
Quarter: 2019Q2

REPORT INFORMATION
  Report Type: Spontaneous
  Country: PT (occurrence: PT)
  Receive Date: 20190610
  Receipt Date: 20190610
  Transmission Date: 20190711
  Serious: Yes (Hospitalization)
  Sender: FDA-Public Use
  Company Number: PT-TEVA-2019-PT-1061128

PATIENT
  Age: 72 Year
  Sex: Female

DRUGS (5)
  1. ACETYLSALICYLIC ACID [Concomitant]
     Active Substance: ASPIRIN
     Indication: DYSLIPIDAEMIA
     Route: 065
  2. METFORMIN [Concomitant]
     Active Substance: METFORMIN HYDROCHLORIDE
     Indication: TYPE 2 DIABETES MELLITUS
     Route: 065
  3. OLMESARTAN W/HYDROCHLOROTHIAZIDE [Suspect]
     Active Substance: HYDROCHLOROTHIAZIDE\OLMESARTAN MEDOXOMIL
     Indication: HYPERTENSION
     Dosage: OLMESARTAN-MEDOXOMIL 20 MG/HYDROCHLOROTHIAZIDE 12.5MG FOR MORE THAN 2.5 YEARS
     Route: 065
  4. SIMVASTATIN. [Concomitant]
     Active Substance: SIMVASTATIN
     Indication: DYSLIPIDAEMIA
     Route: 065
  5. AMLODIPINE [Concomitant]
     Active Substance: AMLODIPINE BESYLATE
     Indication: HYPERTENSION
     Route: 065

REACTIONS (5)
  - Normochromic normocytic anaemia [Recovered/Resolved]
  - Gastrointestinal disorder [Recovered/Resolved]
  - Diarrhoea [Recovered/Resolved]
  - Hypoalbuminaemia [Recovered/Resolved]
  - Abnormal loss of weight [Recovered/Resolved]
